FAERS Safety Report 8780798 (Version 2)
Quarter: 2012Q4

REPORT INFORMATION
  Report Type: 
  Country: US (occurrence: US)
  Receive Date: 20120913
  Receipt Date: 20121210
  Transmission Date: 20130627
  Serious: No
  Sender: FDA-Public Use
  Company Number: US-009507513-1208USA009741

PATIENT
  Age: 26 Year
  Sex: Female
  Weight: 63.49 kg

DRUGS (4)
  1. VICTRELIS [Suspect]
     Indication: HEPATITIS C
     Dosage: 800 mg, tid
     Route: 048
     Dates: start: 20120621
  2. PEGINTRON [Suspect]
     Indication: HEPATITIS C
     Dosage: UNK
     Dates: start: 20120518
  3. RIBAVIRIN [Suspect]
     Indication: HEPATITIS C
     Dosage: UNK
     Dates: start: 20120518
  4. AMBIEN [Concomitant]
     Indication: SLEEP DISORDER
     Dosage: 5 mg, UNK
     Route: 048

REACTIONS (3)
  - Headache [Recovered/Resolved]
  - Pyrexia [Not Recovered/Not Resolved]
  - Drug dose omission [Unknown]
